FAERS Safety Report 8772549 (Version 3)
Quarter: 2012Q4

REPORT INFORMATION
  Report Type: Report from Study
  Country: GB (occurrence: GB)
  Receive Date: 20120905
  Receipt Date: 20121002
  Transmission Date: 20130627
  Serious: Yes (Death, Hospitalization)
  Sender: FDA-Public Use
  Company Number: GB-PFIZER INC-2012080129

PATIENT
  Age: 49 Year
  Sex: Female

DRUGS (15)
  1. DALTEPARIN SODIUM [Suspect]
     Indication: LUNG NEOPLASM MALIGNANT
     Dosage: UNK
     Dates: start: 20111212
  2. CISPLATIN [Suspect]
     Dosage: 114 mg, cycle 1
     Dates: start: 20111212
  3. CISPLATIN [Suspect]
     Dosage: 114 mg, cycle 2
     Dates: start: 20120103
  4. CISPLATIN [Suspect]
     Dosage: 114 mg, cycle 3
     Dates: start: 20120123
  5. GEMCITABINE [Suspect]
     Dosage: 1786 mg, cycle 1
     Dates: start: 20111212
  6. GEMCITABINE [Suspect]
     Dosage: 1786 mg, cycle 1
     Dates: start: 20111219
  7. GEMCITABINE [Suspect]
     Dosage: 1786 mg, cycle 2
     Dates: start: 20120103
  8. GEMCITABINE [Suspect]
     Dosage: 1786 mg, cycle 2
     Dates: start: 20120110
  9. GEMCITABINE [Suspect]
     Dosage: 1786 mg, cycle 3
     Dates: start: 20120123
  10. GEMCITABINE [Suspect]
     Dosage: 1786 mg, cycle 3
     Dates: start: 20120130
  11. PARACETAMOL [Concomitant]
     Dosage: 4 g, daily
     Route: 048
     Dates: end: 20120205
  12. FERROUS SULPHATE [Concomitant]
     Dosage: 600 mg, daily
     Route: 048
     Dates: end: 20120205
  13. DOMPERIDONE [Concomitant]
     Dosage: 10 mg, daily
     Route: 048
     Dates: end: 20120205
  14. SYMBICORT [Concomitant]
     Dosage: 200/6 daily
     Dates: end: 20120205
  15. SEREVENT [Concomitant]
     Dosage: 1 g, daily
     Dates: end: 20120205

REACTIONS (1)
  - Haemoptysis [Fatal]
